FAERS Safety Report 16153851 (Version 3)
Quarter: 2019Q2

REPORT INFORMATION
  Report Type: Report from Study
  Country: GT (occurrence: GT)
  Receive Date: 20190403
  Receipt Date: 20190418
  Transmission Date: 20190711
  Serious: Yes (Other)
  Sender: FDA-Public Use
  Company Number: PHHY2019GT073841

PATIENT
  Sex: Female

DRUGS (4)
  1. VYMADA [Suspect]
     Active Substance: SACUBITRIL\VALSARTAN
     Dosage: 50 MG (SACUBITRIL 24MG AND VALSARTAN 26MG), UNK
     Route: 065
  2. VYMADA [Suspect]
     Active Substance: SACUBITRIL\VALSARTAN
     Indication: CARDIAC FAILURE
     Dosage: 200 MG  (SACUBITRIL 97MG AND VALSARTAN 103MG), Q12H
     Route: 065
     Dates: start: 20181201
  3. LANZOPRAZOL [Concomitant]
     Active Substance: LANSOPRAZOLE
     Indication: PRODUCT USED FOR UNKNOWN INDICATION
     Dosage: UNK UNK, QD
     Route: 065
  4. VYMADA [Suspect]
     Active Substance: SACUBITRIL\VALSARTAN
     Dosage: 100 MG (SACUBITRIL 49MG AND VALSARTAN 51MG), BID
     Route: 065

REACTIONS (12)
  - Gait inability [Unknown]
  - Fatigue [Unknown]
  - Hyperhidrosis [Unknown]
  - Cardiac failure [Unknown]
  - Haemorrhoids [Unknown]
  - Haemorrhoidal haemorrhage [Unknown]
  - General physical health deterioration [Unknown]
  - Asphyxia [Unknown]
  - Hernia [Unknown]
  - Cardiac disorder [Unknown]
  - Drug ineffective [Unknown]
  - Spinal disorder [Unknown]
